FAERS Safety Report 7945427-6 (Version None)
Quarter: 2011Q4

REPORT INFORMATION
  Report Type: 
  Country: None (occurrence: None)
  Receive Date: 20111129
  Receipt Date: 20111118
  Transmission Date: 20120403
  Serious: Yes (Death)
  Sender: FDA-Public Use
  Company Number: US-CELGENEUS-163-21880-11091825

PATIENT
  Sex: Male

DRUGS (13)
  1. REVLIMID [Suspect]
     Dosage: 10 MILLIGRAM
     Route: 048
     Dates: start: 20110524, end: 20110901
  2. WARFARIN SODIUM [Concomitant]
     Dosage: 7.5 MILLIGRAM
     Route: 065
  3. IMIPRAMINE [Concomitant]
     Dosage: 25 MILLIGRAM
     Route: 065
  4. UROXATRAL [Concomitant]
     Dosage: 10 MILLIGRAM
     Route: 065
  5. FINASTERIDE [Concomitant]
     Dosage: 5 MILLIGRAM
     Route: 065
  6. DIAVAN [Concomitant]
     Dosage: 80 MILLIGRAM
     Route: 048
  7. GELNIQUE [Concomitant]
     Dosage: 10 PERCENT
     Route: 065
  8. COREG CR [Concomitant]
     Dosage: 20 MILLIGRAM
     Route: 048
  9. MULTI-VITAMINS [Concomitant]
     Route: 065
  10. ULTRAM [Concomitant]
     Route: 065
  11. LASIX [Concomitant]
     Route: 065
  12. ALLOPURINOL [Concomitant]
     Dosage: 10 MILLIGRAM
     Route: 048
  13. DIGOXIN [Concomitant]
     Dosage: 125 MICROGRAM
     Route: 048

REACTIONS (4)
  - PLATELET COUNT DECREASED [None]
  - MYELODYSPLASTIC SYNDROME [None]
  - HEPATIC CIRRHOSIS [None]
  - HEPATORENAL FAILURE [None]
